FAERS Safety Report 5757506-2 (Version None)
Quarter: 2008Q2

REPORT INFORMATION
  Report Type: 
  Country: None (occurrence: None)
  Receive Date: 20080603
  Receipt Date: 20080523
  Transmission Date: 20081010
  Serious: Yes (Hospitalization, Disabling)
  Sender: FDA-Public Use
  Company Number: GB-PFIZER INC-2008045468

PATIENT
  Age: 45 Year
  Sex: Male
  Weight: 90 kg

DRUGS (3)
  1. CHANTIX [Suspect]
     Route: 048
  2. LISINOPRIL [Concomitant]
     Route: 048
  3. SIMVASTATIN [Concomitant]
     Route: 048

REACTIONS (3)
  - ABDOMINAL PAIN UPPER [None]
  - HALLUCINATION [None]
  - LOCAL SWELLING [None]
